FAERS Safety Report 10060602 (Version 1)
Quarter: 2014Q2

REPORT INFORMATION
  Report Type: Spontaneous
  Country: JP (occurrence: JP)
  Receive Date: 20140404
  Receipt Date: 20140404
  Transmission Date: 20141212
  Serious: No
  Sender: FDA-Public Use
  Company Number: JP-BRISTOL-MYERS SQUIBB COMPANY-20577573

PATIENT
  Age: 62 Year
  Sex: Male

DRUGS (4)
  1. METGLUCO [Suspect]
     Indication: DIABETES MELLITUS
     Route: 048
  2. CRESTOR [Suspect]
     Indication: DIABETES MELLITUS
     Route: 048
  3. AMARYL [Concomitant]
     Indication: DIABETES MELLITUS
     Dosage: INCREASED TO 2 MG/DAY
  4. VARENICLINE TARTRATE [Concomitant]
     Indication: SMOKING CESSATION THERAPY
     Route: 048

REACTIONS (1)
  - Hepatic function abnormal [Unknown]
